FAERS Safety Report 16079665 (Version 4)
Quarter: 2019Q2

REPORT INFORMATION
  Report Type: Spontaneous
  Country: US (occurrence: US)
  Receive Date: 20190315
  Receipt Date: 20190502
  Transmission Date: 20190711
  Serious: Yes (Other)
  Sender: FDA-Public Use
  Company Number: US-GE HEALTHCARE LIFE SCIENCES-2019CSU001186

PATIENT
  Sex: Female

DRUGS (3)
  1. OMNIPAQUE [Suspect]
     Active Substance: IOHEXOL
     Indication: COMPUTERISED TOMOGRAM
     Dosage: 100 ML, SINGLE
     Route: 042
     Dates: start: 20190223, end: 20190223
  2. OMNIPAQUE [Suspect]
     Active Substance: IOHEXOL
     Indication: PRODUCT USED FOR UNKNOWN INDICATION
  3. MEDROL [Concomitant]
     Active Substance: METHYLPREDNISOLONE
     Indication: RASH
     Dosage: UNK
     Route: 048
     Dates: start: 20190223

REACTIONS (2)
  - Pruritus [Recovered/Resolved]
  - Urticaria [Recovered/Resolved]

NARRATIVE: CASE EVENT DATE: 20190223
